FAERS Safety Report 9657295 (Version 2)
Quarter: 2014Q1

REPORT INFORMATION
  Report Type: Spontaneous
  Country: IT (occurrence: IT)
  Receive Date: 20131030
  Receipt Date: 20140108
  Transmission Date: 20141002
  Serious: Yes (Other)
  Sender: FDA-Public Use
  Company Number: IT-TEVA-439178ISR

PATIENT
  Age: 17 Year
  Sex: Female

DRUGS (3)
  1. CARBOLITHIUM 300MG [Suspect]
     Dosage: 3 DOSAGE FORMS DAILY;
     Dates: start: 20130913, end: 20130913
  2. LISACORT [Suspect]
     Dosage: 10 DOSAGE FORMS DAILY;
     Dates: start: 20130913, end: 20130913
  3. HALDOL [Suspect]
     Dosage: 1 ML DAILY;
     Dates: start: 20130913, end: 20130913

REACTIONS (4)
  - Self injurious behaviour [Unknown]
  - Drug abuse [Unknown]
  - Sluggishness [Unknown]
  - Thrombocytosis [Unknown]
